FAERS Safety Report 7576959-0 (Version None)
Quarter: 2011Q2

REPORT INFORMATION
  Report Type: 
  Country: None (occurrence: None)
  Receive Date: 20110624
  Receipt Date: 20110624
  Transmission Date: 20111010
  Serious: Yes (Disabling, Other)
  Sender: FDA-Public Use
  Company Number: None

PATIENT
  Age: 22 Year
  Sex: Female
  Weight: 72.5755 kg

DRUGS (1)
  1. MIRENA [Suspect]
     Indication: CONTRACEPTION
     Dosage: ONE TIME INSERTION VAG
     Route: 067
     Dates: start: 20110113, end: 20110622

REACTIONS (11)
  - DYSPAREUNIA [None]
  - WEIGHT INCREASED [None]
  - DISTURBANCE IN ATTENTION [None]
  - DEPRESSION [None]
  - MYALGIA [None]
  - ALOPECIA [None]
  - HYPOAESTHESIA [None]
  - LOSS OF LIBIDO [None]
  - PARAESTHESIA [None]
  - FATIGUE [None]
  - MOVEMENT DISORDER [None]
